FAERS Safety Report 7586219-X (Version None)
Quarter: 2011Q3

REPORT INFORMATION
  Report Type: 
  Country: None (occurrence: None)
  Receive Date: 20110701
  Receipt Date: 20110629
  Transmission Date: 20111222
  Serious: Yes (Other)
  Sender: FDA-Public Use
  Company Number: US-SANOFI-AVENTIS-2011SA041488

PATIENT
  Age: 55 Year
  Sex: Male

DRUGS (6)
  1. ALL OTHER THERAPEUTIC PRODUCTS [Suspect]
     Indication: PROSTATIC DISORDER
     Route: 065
  2. SILDENAFIL CITRATE [Concomitant]
  3. SIMVASTATIN [Concomitant]
  4. MULTAQ [Suspect]
     Indication: ATRIAL FIBRILLATION
     Route: 048
     Dates: start: 20110601, end: 20110601
  5. ALL OTHER THERAPEUTIC PRODUCTS [Concomitant]
  6. AMIODARONE HCL [Concomitant]

REACTIONS (7)
  - DIZZINESS [None]
  - CHEST DISCOMFORT [None]
  - ATRIAL FIBRILLATION [None]
  - HEART RATE DECREASED [None]
  - ASTHENIA [None]
  - CHEST PAIN [None]
  - CONDITION AGGRAVATED [None]
